FAERS Safety Report 4522607-3 (Version None)
Quarter: 2004Q4

REPORT INFORMATION
  Report Type: 
  Country: None (occurrence: None)
  Receive Date: 20041207
  Receipt Date: 20041124
  Transmission Date: 20050328
  Serious: Yes (Hospitalization)
  Sender: FDA-Public Use
  Company Number: 2004098646

PATIENT
  Age: 81 Year
  Sex: Female

DRUGS (4)
  1. ZOLOFT [Suspect]
     Indication: ILL-DEFINED DISORDER
     Dosage: ORAL
     Route: 048
     Dates: start: 20040909
  2. CLOPIDOGREL BISULFATE [Concomitant]
  3. PIRIBEDIL  (PIRIBEDIL) [Concomitant]
  4. GINKGO BILOBA EXTRACT (GINKGO BILOBA EXTRACT) [Concomitant]

REACTIONS (8)
  - ACCIDENTAL OVERDOSE [None]
  - AGITATION [None]
  - CULTURE URINE POSITIVE [None]
  - ELECTROENCEPHALOGRAM ABNORMAL [None]
  - HALLUCINATION, VISUAL [None]
  - HYPOKALAEMIA [None]
  - HYPONATRAEMIA [None]
  - INAPPROPRIATE ANTIDIURETIC HORMONE SECRETION [None]
